FAERS Safety Report 15265272 (Version 1)
Quarter: 2018Q3

REPORT INFORMATION
  Report Type: Spontaneous
  Country: US (occurrence: US)
  Receive Date: 20180810
  Receipt Date: 20180810
  Transmission Date: 20181010
  Serious: No
  Sender: FDA-Public Use
  Company Number: US-SA-2018SA218265

PATIENT
  Age: 63 Year
  Sex: Female

DRUGS (2)
  1. PRALUENT [Suspect]
     Active Substance: ALIROCUMAB
     Indication: PROPHYLAXIS
     Dosage: 150 MG, QOW
     Route: 058
     Dates: start: 20180727
  2. PRALUENT [Suspect]
     Active Substance: ALIROCUMAB
     Indication: PROPHYLAXIS
     Dosage: 150 MG, QOW
     Route: 058
     Dates: start: 20180727

REACTIONS (8)
  - Malaise [Unknown]
  - Feeling abnormal [Unknown]
  - Influenza like illness [Unknown]
  - Vision blurred [Unknown]
  - Depressed mood [Unknown]
  - Headache [Unknown]
  - Arthralgia [Unknown]
  - Hyperhidrosis [Unknown]

NARRATIVE: CASE EVENT DATE: 20180727
